FAERS Safety Report 6109824-6 (Version None)
Quarter: 2009Q1

REPORT INFORMATION
  Report Type: 
  Country: None (occurrence: None)
  Receive Date: 20090310
  Receipt Date: 20080612
  Transmission Date: 20090719
  Serious: No
  Sender: FDA-Public Use
  Company Number: A0732653A

PATIENT
  Age: 60 Year
  Sex: Male

DRUGS (6)
  1. NICORETTE [Suspect]
  2. NICORETTE [Suspect]
  3. NICORETTE [Suspect]
  4. NICORETTE (MINT) [Suspect]
  5. NICORETTE [Suspect]
  6. COUMADIN [Concomitant]

REACTIONS (1)
  - INTENTIONAL DRUG MISUSE [None]
